FAERS Safety Report 21019493 (Version 1)
Quarter: 2022Q2

REPORT INFORMATION
  Report Type: Spontaneous
  Country: NO (occurrence: NO)
  Receive Date: 20220628
  Receipt Date: 20220628
  Transmission Date: 20220720
  Serious: No
  Sender: FDA-Public Use
  Company Number: NO-JAZZ-2022-NO-018091

PATIENT
  Age: 17 Year
  Sex: Male

DRUGS (1)
  1. XYREM [Suspect]
     Active Substance: SODIUM OXYBATE
     Indication: Narcolepsy
     Dosage: 500 MILLIGRAM PER MILLILITER

REACTIONS (2)
  - Food craving [Unknown]
  - Wrong technique in product usage process [Unknown]
